FAERS Safety Report 23876792 (Version 3)
Quarter: 2024Q3

REPORT INFORMATION
  Report Type: Report from Study
  Country: US (occurrence: US)
  Receive Date: 20240521
  Receipt Date: 20240717
  Transmission Date: 20241017
  Serious: No
  Sender: ALEXION PHARMACEUTICALS
  Company Number: US-AstraZeneca-CH-00626135A

PATIENT
  Age: 80 Year
  Sex: Male

DRUGS (1)
  1. ULTOMIRIS [Suspect]
     Active Substance: RAVULIZUMAB-CWVZ
     Indication: Myasthenia gravis
     Dosage: UNK
     Route: 042
     Dates: start: 20231208, end: 20240412

REACTIONS (4)
  - Photophobia [Recovered/Resolved]
  - Asthenia [Recovered/Resolved with Sequelae]
  - Pain [Unknown]
  - Therapeutic response shortened [Recovered/Resolved with Sequelae]

NARRATIVE: CASE EVENT DATE: 20240407
